FAERS Safety Report 4332834-6 (Version None)
Quarter: 2004Q1

REPORT INFORMATION
  Report Type: 
  Country: None (occurrence: None)
  Receive Date: 20040330
  Receipt Date: 20040226
  Transmission Date: 20041129
  Serious: Yes (Hospitalization, Other)
  Sender: FDA-Public Use
  Company Number: ENTC2004-0024

PATIENT
  Age: 56 Year
  Sex: Male
  Weight: 86.17 kg

DRUGS (9)
  1. STALEVO 50 [Suspect]
     Indication: PARKINSON'S DISEASE
     Dosage: SEE IMAGE
     Route: 048
     Dates: start: 20040210, end: 20040212
  2. STALEVO 50 [Suspect]
     Indication: PARKINSON'S DISEASE
     Dosage: SEE IMAGE
     Route: 048
     Dates: start: 20040215, end: 20040217
  3. STALEVO 50 [Suspect]
     Indication: PARKINSON'S DISEASE
     Dosage: SEE IMAGE
     Route: 048
     Dates: start: 20040217
  4. PARLODEL (UNKNOWN) [Concomitant]
  5. KEMADREN (UNKNOWN) [Concomitant]
  6. CLOZAPINE (UNKNOWN) [Concomitant]
  7. ATIVAN (UNKNOWN) [Concomitant]
  8. PAXIL [Concomitant]
  9. BROMOCRIPTINE (UNKNOWN) [Concomitant]

REACTIONS (5)
  - ABASIA [None]
  - DYSSTASIA [None]
  - MOVEMENT DISORDER [None]
  - MUSCLE RIGIDITY [None]
  - OEDEMA PERIPHERAL [None]
